FAERS Safety Report 19707997 (Version 4)
Quarter: 2021Q3

REPORT INFORMATION
  Report Type: Spontaneous
  Country: DK (occurrence: DK)
  Receive Date: 20210817
  Receipt Date: 20210921
  Transmission Date: 20211014
  Serious: Yes (Other)
  Sender: FDA-Public Use
  Company Number: NVSC2021DK184095

PATIENT
  Sex: Female

DRUGS (8)
  1. PAROXETINE HYDROCHLORIDE. [Suspect]
     Active Substance: PAROXETINE HYDROCHLORIDE
     Indication: PRODUCT USED FOR UNKNOWN INDICATION
     Dosage: 50 MG
     Route: 065
     Dates: start: 20200406, end: 20210807
  2. LANSOPRAZOLE. [Suspect]
     Active Substance: LANSOPRAZOLE
     Indication: PRODUCT USED FOR UNKNOWN INDICATION
     Dosage: 30 MG, QD
     Route: 065
  3. OXAPAX [Concomitant]
     Active Substance: OXAZEPAM
     Dosage: UNK
     Route: 065
     Dates: start: 20210815
  4. HJERTEALBYL [Concomitant]
     Indication: PRODUCT USED FOR UNKNOWN INDICATION
     Dosage: 75 MG, QD
     Route: 065
  5. AMLODIPINE [Concomitant]
     Active Substance: AMLODIPINE BESYLATE
     Indication: PRODUCT USED FOR UNKNOWN INDICATION
     Dosage: 5 MG, QD
     Route: 065
  6. OXAPAX [Concomitant]
     Active Substance: OXAZEPAM
     Indication: PRODUCT USED FOR UNKNOWN INDICATION
     Dosage: UNK
     Route: 065
  7. ATORVASTATIN [Concomitant]
     Active Substance: ATORVASTATIN
     Indication: PRODUCT USED FOR UNKNOWN INDICATION
     Dosage: UNK UNK, QD
     Route: 065
  8. METOPROLOL SUCCINATE. [Suspect]
     Active Substance: METOPROLOL SUCCINATE
     Indication: PRODUCT USED FOR UNKNOWN INDICATION
     Dosage: 50 MG
     Route: 065
     Dates: start: 2017

REACTIONS (15)
  - Haemorrhage [Not Recovered/Not Resolved]
  - Palpitations [Not Recovered/Not Resolved]
  - Herpes ophthalmic [Unknown]
  - Mental disorder [Unknown]
  - Visual impairment [Not Recovered/Not Resolved]
  - Dizziness [Not Recovered/Not Resolved]
  - Astigmatism [Not Recovered/Not Resolved]
  - Headache [Unknown]
  - Illness [Not Recovered/Not Resolved]
  - Balance disorder [Not Recovered/Not Resolved]
  - Anxiety [Unknown]
  - Myalgia [Not Recovered/Not Resolved]
  - Sensory disturbance [Not Recovered/Not Resolved]
  - Product administration error [Not Recovered/Not Resolved]
  - Feeling abnormal [Not Recovered/Not Resolved]

NARRATIVE: CASE EVENT DATE: 2020
